FAERS Safety Report 6584628-9 (Version None)
Quarter: 2010Q1

REPORT INFORMATION
  Report Type: 
  Country: None (occurrence: None)
  Receive Date: 20100213
  Receipt Date: 20100213
  Transmission Date: 20100710
  Serious: No
  Sender: FDA-Public Use
  Company Number: None

PATIENT
  Age: 68 Year
  Sex: Male
  Weight: 92.9874 kg

DRUGS (1)
  1. ZICAM COLD SWABS ZICAM [Suspect]
     Indication: NASOPHARYNGITIS
     Dosage: ONE SWAB EVERY 6 HRSPER DAY NASAL, PER COLD
     Route: 045
     Dates: start: 20081001, end: 20090301

REACTIONS (1)
  - HYPOSMIA [None]
